FAERS Safety Report 7960005-0 (Version None)
Quarter: 2011Q4

REPORT INFORMATION
  Report Type: 
  Country: None (occurrence: None)
  Receive Date: 20111206
  Receipt Date: 20111122
  Transmission Date: 20120403
  Serious: Yes (Other)
  Sender: FDA-Public Use
  Company Number: PHHY2011US103034

PATIENT

DRUGS (1)
  1. IMATINIB MESYLATE [Suspect]
     Dosage: 600 MG,/DAY

REACTIONS (4)
  - HYPOXIA [None]
  - SKIN LESION [None]
  - DERMATOSIS [None]
  - ALVEOLITIS ALLERGIC [None]
